FAERS Safety Report 5416494-9 (Version None)
Quarter: 2007Q3

REPORT INFORMATION
  Report Type: 
  Country: None (occurrence: None)
  Receive Date: 20070816
  Receipt Date: 20070806
  Transmission Date: 20080115
  Serious: Yes (Other)
  Sender: FDA-Public Use
  Company Number: US-NOVOPROD-266267

PATIENT

DRUGS (1)
  1. NORDITROPIN [Suspect]
     Indication: ILL-DEFINED DISORDER
     Dosage: UNKNOWN
     Route: 058

REACTIONS (1)
  - GLAUCOMA [None]
